FAERS Safety Report 15315784 (Version 1)
Quarter: 2018Q3

REPORT INFORMATION
  Report Type: Spontaneous
  Country: US (occurrence: US)
  Receive Date: 20180815
  Receipt Date: 20180815
  Transmission Date: 20181010
  Serious: Yes (Other)
  Sender: FDA-Public Use
  Company Number: None

PATIENT
  Age: 70 Year
  Sex: Female
  Weight: 109.77 kg

DRUGS (25)
  1. ENABLEX [Concomitant]
     Active Substance: DARIFENACIN HYDROBROMIDE
  2. AMITRIPTYLINE [Concomitant]
     Active Substance: AMITRIPTYLINE
  3. SENNA LAXATIVE [Concomitant]
     Active Substance: SENNOSIDES
  4. VITAMIN B12 [Concomitant]
     Active Substance: CYANOCOBALAMIN
  5. HYDROCHLOROTHIAZIDE. [Concomitant]
     Active Substance: HYDROCHLOROTHIAZIDE
  6. ALLOPURINOL. [Concomitant]
     Active Substance: ALLOPURINOL
  7. CLARITIN [Concomitant]
     Active Substance: LORATADINE
  8. ZINC. [Concomitant]
     Active Substance: ZINC
  9. METHOCARABAMOL [Concomitant]
  10. LYRICA [Concomitant]
     Active Substance: PREGABALIN
  11. ELIQUIS [Suspect]
     Active Substance: APIXABAN
     Indication: ATRIAL FIBRILLATION
     Dosage: ?          QUANTITY:1 DF DOSAGE FORM;?
     Route: 048
     Dates: start: 20180321, end: 20180524
  12. FLECAINIDE ACETATE. [Concomitant]
     Active Substance: FLECAINIDE ACETATE
  13. OMEPRAZOLE. [Concomitant]
     Active Substance: OMEPRAZOLE
  14. CALCIUM [Concomitant]
     Active Substance: CALCIUM
  15. VITAMIN D3 [Concomitant]
     Active Substance: CHOLECALCIFEROL
  16. LOSARTAN POT. [Concomitant]
     Active Substance: LOSARTAN POTASSIUM
  17. LEVOTHYROXINE. [Concomitant]
     Active Substance: LEVOTHYROXINE
  18. STOOL SOFTENER (DOCUSATE) [Concomitant]
     Active Substance: DOCUSATE
  19. LOOP RECORDER [Concomitant]
  20. MAGNESIUM [Concomitant]
     Active Substance: MAGNESIUM
  21. CENTRUM SILVER [Concomitant]
     Active Substance: MINERALS\VITAMINS
  22. ACTOPLUS MET [Concomitant]
     Active Substance: METFORMIN HYDROCHLORIDE\PIOGLITAZONE HYDROCHLORIDE
  23. RESTASIS [Concomitant]
     Active Substance: CYCLOSPORINE
  24. FEMRING [Concomitant]
     Active Substance: ESTRADIOL ACETATE
  25. 81 MG ASPIRIN [Concomitant]
     Active Substance: ASPIRIN

REACTIONS (1)
  - Alopecia [None]
